FAERS Safety Report 9507783 (Version 1)
Quarter: 2013Q3

REPORT INFORMATION
  Report Type: Spontaneous
  Country: US (occurrence: None)
  Receive Date: 20130906
  Receipt Date: 20130906
  Transmission Date: 20140515
  Serious: Yes (Other)
  Sender: FDA-Public Use
  Company Number: None

PATIENT
  Age: 43 Year
  Sex: Female
  Weight: 65.32 kg

DRUGS (1)
  1. XYZAL [Suspect]
     Indication: SINUSITIS
     Dosage: 5MG DAILY BY MOUTH
     Route: 048
     Dates: start: 20100406

REACTIONS (2)
  - Diarrhoea [None]
  - Muscle spasms [None]
